FAERS Safety Report 4866895-2 (Version None)
Quarter: 2005Q4

REPORT INFORMATION
  Report Type: 
  Country: None (occurrence: None)
  Receive Date: 20051222
  Receipt Date: 20051208
  Transmission Date: 20060501
  Serious: Yes (Other)
  Sender: FDA-Public Use
  Company Number: AU200512001672

PATIENT
  Age: 43 Year
  Sex: Male

DRUGS (2)
  1. FLUOXETINE HCL [Suspect]
     Indication: DEPRESSION
     Dosage: 20 MG, DAILY (1/D)
     Dates: start: 20050101
  2. KEFLEX [Suspect]
     Indication: TOOTHACHE
     Dosage: 240 MG, 4/D
     Dates: start: 20051204

REACTIONS (10)
  - BLOOD PRESSURE DECREASED [None]
  - CONTUSION [None]
  - DIZZINESS [None]
  - HAEMATOCHEZIA [None]
  - HEAD INJURY [None]
  - MALAISE [None]
  - MOUTH HAEMORRHAGE [None]
  - POST PROCEDURAL HAEMORRHAGE [None]
  - SYNCOPE [None]
  - TOOTHACHE [None]
